FAERS Safety Report 22536477 (Version 1)
Quarter: 2023Q2

REPORT INFORMATION
  Report Type: Spontaneous
  Country: US (occurrence: US)
  Receive Date: 20230608
  Receipt Date: 20230608
  Transmission Date: 20230722
  Serious: Yes (Hospitalization)
  Sender: FDA-Public Use
  Company Number: US-MYLANLABS-2023M1059078

PATIENT
  Age: 39 Year
  Sex: Female

DRUGS (9)
  1. BUPROPION [Interacting]
     Active Substance: BUPROPION
     Indication: Product used for unknown indication
     Dosage: 450 MILLIGRAM, QD
     Route: 065
  2. CLONIDINE [Interacting]
     Active Substance: CLONIDINE
     Indication: Anxiety
     Dosage: 0.1 MILLIGRAM, TID
     Route: 065
  3. DESVENLAFAXINE SUCCINATE [Interacting]
     Active Substance: DESVENLAFAXINE SUCCINATE
     Indication: Product used for unknown indication
     Dosage: 200 MILLIGRAM, QD
     Route: 065
  4. YOHIMBINE [Interacting]
     Active Substance: YOHIMBINE
     Indication: Disturbance in sexual arousal
     Dosage: 1 DOSAGE FORM
     Route: 048
  5. YOHIMBINE [Interacting]
     Active Substance: YOHIMBINE
     Indication: Supplementation therapy
  6. BUPRENORPHINE HYDROCHLORIDE\NALOXONE HYDROCHLORIDE [Concomitant]
     Active Substance: BUPRENORPHINE HYDROCHLORIDE\NALOXONE HYDROCHLORIDE
     Indication: Product used for unknown indication
     Dosage: UNK, QD (1.5 FILMS)
     Route: 065
  7. LISDEXAMFETAMINE [Concomitant]
     Active Substance: LISDEXAMFETAMINE
     Indication: Product used for unknown indication
     Dosage: UNK, BID (60 MG EVERY MORNING AND 40 MG AT NOON)
     Route: 065
  8. TRAZODONE [Concomitant]
     Active Substance: TRAZODONE HYDROCHLORIDE
     Indication: Product used for unknown indication
     Dosage: 100 MILLIGRAM, HS (NIGHTLY)
     Route: 065
  9. LEVONORGESTREL [Concomitant]
     Active Substance: LEVONORGESTREL
     Indication: Product used for unknown indication
     Dosage: IUD
     Route: 015

REACTIONS (4)
  - Drug interaction [Unknown]
  - Hypertensive emergency [Unknown]
  - Adrenergic syndrome [Unknown]
  - Haemorrhage intracranial [Unknown]
